FAERS Safety Report 9154211 (Version 2)
Quarter: 2013Q1

REPORT INFORMATION
  Report Type: Spontaneous
  Country: JP (occurrence: JP)
  Receive Date: 20130311
  Receipt Date: 20130322
  Transmission Date: 20140127
  Serious: Yes (Other)
  Sender: FDA-Public Use
  Company Number: JP-EISAI INC-E2020-12075-SPO-JP

PATIENT
  Age: 88 Year
  Sex: Female

DRUGS (6)
  1. ARICEPT [Suspect]
     Indication: DEMENTIA ALZHEIMER^S TYPE
     Route: 048
     Dates: start: 20130221, end: 20130227
  2. ARICEPT [Suspect]
     Route: 048
     Dates: start: 20130228, end: 20130305
  3. GASMOTIN [Concomitant]
     Route: 048
  4. MAGNESIUM OXIDE [Concomitant]
     Route: 048
  5. DAIOKANZOTO [Concomitant]
     Route: 048
  6. ROKUMIGAN [Concomitant]
     Route: 048

REACTIONS (1)
  - Rhabdomyolysis [Recovering/Resolving]
